FAERS Safety Report 13537648 (Version 1)
Quarter: 2017Q2

REPORT INFORMATION
  Report Type: Report from Study
  Country: US (occurrence: US)
  Receive Date: 20170511
  Receipt Date: 20170511
  Transmission Date: 20170830
  Serious: Yes (Other)
  Sender: FDA-Public Use
  Company Number: US-PROMETHEUS LABORATORIES-2017PL000047

PATIENT
  Age: 55 Year
  Sex: Male

DRUGS (4)
  1. PROLEUKIN [Suspect]
     Active Substance: ALDESLEUKIN
     Dosage: 68700000 IU, EVERY 8 HOURS
     Route: 042
     Dates: start: 20101005, end: 20101008
  2. PROLEUKIN [Suspect]
     Active Substance: ALDESLEUKIN
     Dosage: 70.14 MILLION IU, EVERY 8 HOURS
     Route: 042
     Dates: start: 20100614, end: 20100617
  3. PROLEUKIN [Suspect]
     Active Substance: ALDESLEUKIN
     Indication: MALIGNANT MELANOMA
     Dosage: 70680000 IU, EVERY 8 HOURS
     Route: 042
     Dates: start: 20100503, end: 20100507
  4. PROLEUKIN [Suspect]
     Active Substance: ALDESLEUKIN
     Dosage: 600 KIU, EVERY 8 HOURS
     Route: 042
     Dates: start: 20100913, end: 20100916

REACTIONS (9)
  - Renal failure [Recovered/Resolved]
  - Confusional state [Recovered/Resolved]
  - Diarrhoea [Recovered/Resolved]
  - Confusional state [Recovered/Resolved]
  - Hypomagnesaemia [Recovered/Resolved]
  - Thrombocytopenia [Recovered/Resolved]
  - Autoimmune myocarditis [Recovered/Resolved]
  - Renal failure [Recovered/Resolved]
  - Renal failure [Recovered/Resolved]

NARRATIVE: CASE EVENT DATE: 201005
